FAERS Safety Report 5616597-X (Version None)
Quarter: 2008Q1

REPORT INFORMATION
  Report Type: 
  Country: None (occurrence: None)
  Receive Date: 20080207
  Receipt Date: 20070827
  Transmission Date: 20080703
  Serious: No
  Sender: FDA-Public Use
  Company Number: A0677414A

PATIENT

DRUGS (1)
  1. PAXIL CR [Suspect]
     Indication: DRUG USE FOR UNKNOWN INDICATION
     Dosage: 25MG UNKNOWN
     Route: 065

REACTIONS (6)
  - BURNING SENSATION [None]
  - CHEILITIS [None]
  - LIP BLISTER [None]
  - LIP DRY [None]
  - LIP PAIN [None]
  - LIP SWELLING [None]
